FAERS Safety Report 17724524 (Version 4)
Quarter: 2022Q1

REPORT INFORMATION
  Report Type: Spontaneous
  Country: IT (occurrence: IT)
  Receive Date: 20200429
  Receipt Date: 20220330
  Transmission Date: 20220424
  Serious: Yes (Hospitalization, Other)
  Sender: FDA-Public Use
  Company Number: None

PATIENT
  Age: 26 Year
  Sex: Male

DRUGS (6)
  1. CARBAMAZEPINE [Interacting]
     Active Substance: CARBAMAZEPINE
     Indication: Schizoaffective disorder
     Dosage: ADDED AT A FINAL DOSE OF 800 MG, QD
     Route: 065
  2. LURASIDONE [Interacting]
     Active Substance: LURASIDONE
     Indication: Schizoaffective disorder
     Dosage: 800 MG, QD
     Route: 048
  3. LURASIDONE [Interacting]
     Active Substance: LURASIDONE
     Dosage: RATED TO THE DOSAGE OF 120 MG, QD
     Route: 048
  4. LURASIDONE [Interacting]
     Active Substance: LURASIDONE
     Dosage: 150 MG, QD
     Route: 065
  5. LURASIDONE [Interacting]
     Active Substance: LURASIDONE
     Dosage: 120 MG, QD
     Route: 065
  6. CARIPRAZINE [Concomitant]
     Active Substance: CARIPRAZINE
     Indication: Product used for unknown indication
     Dosage: UNK
     Route: 065

REACTIONS (4)
  - Reversible splenial lesion syndrome [Recovered/Resolved]
  - Drug interaction [Recovering/Resolving]
  - Central nervous system lesion [Recovered/Resolved]
  - Aggression [Unknown]
